FAERS Safety Report 23087696 (Version 2)
Quarter: 2023Q4

REPORT INFORMATION
  Report Type: Spontaneous
  Country: JP (occurrence: JP)
  Receive Date: 20231020
  Receipt Date: 20231222
  Transmission Date: 20240109
  Serious: Yes (Hospitalization, Other)
  Sender: FDA-Public Use
  Company Number: JP-GLAXOSMITHKLINE-JP2023JPN142386

PATIENT

DRUGS (6)
  1. SUMATRIPTAN SUCCINATE [Suspect]
     Active Substance: SUMATRIPTAN SUCCINATE
     Indication: Headache
     Dosage: UNK, OCCASIONAL USE SINCE AROUND HER 30S
  2. SUMATRIPTAN SUCCINATE [Suspect]
     Active Substance: SUMATRIPTAN SUCCINATE
     Indication: Photosensitivity reaction
     Dosage: UNK, FREQUENT USE
  3. ACETAMINOPHEN [Concomitant]
     Active Substance: ACETAMINOPHEN
     Indication: Headache
     Dosage: UNK, OCCASIONAL USE SINCE AROUND HER 30S
  4. ACETAMINOPHEN [Concomitant]
     Active Substance: ACETAMINOPHEN
     Indication: Photophobia
  5. LOXOPROFEN SODIUM [Concomitant]
     Active Substance: LOXOPROFEN SODIUM
     Indication: Headache
     Dosage: UNK, OCCASIONAL USE SINCE AROUND HER 30S
  6. LOXOPROFEN SODIUM [Concomitant]
     Active Substance: LOXOPROFEN SODIUM
     Indication: Photophobia

REACTIONS (11)
  - Salivary gland cancer [Unknown]
  - Drug abuse [Unknown]
  - IIIrd nerve paralysis [Unknown]
  - Metastases to central nervous system [Unknown]
  - Headache [Recovered/Resolved]
  - Medication overuse headache [Unknown]
  - Nausea [Recovered/Resolved]
  - Eye pain [Unknown]
  - Hypoaesthesia [Unknown]
  - Cancer pain [Unknown]
  - Trigeminal nerve disorder [Unknown]
